FAERS Safety Report 18304755 (Version 1)
Quarter: 2020Q3

REPORT INFORMATION
  Report Type: Spontaneous
  Country: US (occurrence: US)
  Receive Date: 20200923
  Receipt Date: 20200923
  Transmission Date: 20201103
  Serious: No
  Sender: FDA-Public Use
  Company Number: None

PATIENT
  Age: 69 Year
  Sex: Male
  Weight: 111 kg

DRUGS (2)
  1. DOFETILIDE (DOFETILIDE 500MCG CAP, UD) [Suspect]
     Active Substance: DOFETILIDE
     Indication: ATRIAL FIBRILLATION
     Dosage: ?          OTHER STRENGTH:500MCG;?
     Route: 048
     Dates: start: 20200817, end: 20200820
  2. DOFETILIDE (DOFETILIDE 250MCG CAP, UD) [Suspect]
     Active Substance: DOFETILIDE
     Indication: ATRIAL FIBRILLATION
     Dosage: ?          OTHER STRENGTH:250MCG;?
     Route: 048
     Dates: start: 20200820, end: 20200821

REACTIONS (2)
  - Palpitations [None]
  - Ventricular tachycardia [None]

NARRATIVE: CASE EVENT DATE: 20200821
